FAERS Safety Report 25468343 (Version 1)
Quarter: 2025Q2

REPORT INFORMATION
  Report Type: Spontaneous
  Country: US (occurrence: US)
  Receive Date: 20250623
  Receipt Date: 20250623
  Transmission Date: 20250717
  Serious: No
  Sender: ROCHE
  Company Number: US-ROCHE-10000316740

PATIENT
  Sex: Female

DRUGS (15)
  1. XOLAIR PFS [Suspect]
     Active Substance: OMALIZUMAB
     Indication: Seasonal allergy
     Dosage: STRENGTH: 150 MG/ML
     Route: 058
  2. XOLAIR PFS [Suspect]
     Active Substance: OMALIZUMAB
  3. ASPIR-LOW TBE 81MG [Concomitant]
  4. ATORVASTATIN TAB 80MG [Concomitant]
  5. AZITHROMYCIN TAB 250MG [Concomitant]
  6. AZITHROMYCIN TAB 250MG [Concomitant]
  7. BREZTRI AERO AER 160-9-4 [Concomitant]
  8. COMBIVENT RE AER 20-100MC [Concomitant]
  9. GLIPIZIDE POW [Concomitant]
  10. ISOSORBIDE D TAB 40MG [Concomitant]
  11. LOSARTAN POTASSIUM [Concomitant]
     Active Substance: LOSARTAN POTASSIUM
  12. METFORMIN HC POW [Concomitant]
     Route: 048
  13. MULTIVITAMIN TAB [Concomitant]
  14. VITAMIN B12 TBC 1000 MCG [Concomitant]
  15. VITAMIN C TAB 1000MG [Concomitant]

REACTIONS (3)
  - Respiratory tract infection [Recovering/Resolving]
  - Productive cough [Recovering/Resolving]
  - Off label use [Unknown]
